FAERS Safety Report 20911345 (Version 2)
Quarter: 2022Q3

REPORT INFORMATION
  Report Type: Spontaneous
  Country: BE (occurrence: BE)
  Receive Date: 20220603
  Receipt Date: 20220701
  Transmission Date: 20221027
  Serious: Yes (Other)
  Sender: FDA-Public Use
  Company Number: None

PATIENT
  Age: 71 Year
  Sex: Male

DRUGS (13)
  1. PAXLOVID [Interacting]
     Active Substance: NIRMATRELVIR\RITONAVIR
     Indication: COVID-19 treatment
     Dosage: 2 DF, DAILY
     Route: 048
     Dates: start: 20220505, end: 20220509
  2. TACROLIMUS [Interacting]
     Active Substance: TACROLIMUS
     Indication: Prophylaxis against transplant rejection
     Dosage: 2.5 MG, 1X/DAY
     Route: 048
     Dates: start: 20210407
  3. TACROLIMUS [Interacting]
     Active Substance: TACROLIMUS
     Dosage: 0.5 MG
     Dates: start: 20220513
  4. TACROLIMUS [Interacting]
     Active Substance: TACROLIMUS
     Dosage: UNK, 2X/DAY
  5. ATORVASTATIN [Concomitant]
     Active Substance: ATORVASTATIN
     Dosage: UNK UNK, 1X/DAY
  6. PANTOMED [DEXPANTHENOL] [Concomitant]
     Dosage: UNK UNK, 1X/DAY
  7. MEDROL [Concomitant]
     Active Substance: METHYLPREDNISOLONE
     Dosage: UNK UNK, 1X/DAY
  8. SODIUM BICARBONATE [Concomitant]
     Active Substance: SODIUM BICARBONATE
     Dosage: 2X2
  9. GLIQUIDONE [Concomitant]
     Active Substance: GLIQUIDONE
     Dosage: 0.5/1/0.5
  10. ALLOPURINOL [Concomitant]
     Active Substance: ALLOPURINOL
     Dosage: 1X 0.5
  11. LINAGLIPTIN [Concomitant]
     Active Substance: LINAGLIPTIN
     Dosage: UNK UNK, 1X/DAY
  12. CARVEDILOL [Concomitant]
     Active Substance: CARVEDILOL
     Dosage: 2X1
  13. AMLODIPINE [Concomitant]
     Active Substance: AMLODIPINE BESYLATE
     Dosage: 1X1

REACTIONS (3)
  - Drug interaction [Unknown]
  - Immunosuppressant drug level increased [Recovering/Resolving]
  - Tremor [Recovering/Resolving]
